FAERS Safety Report 9434225 (Version 1)
Quarter: 2013Q3

REPORT INFORMATION
  Report Type: Spontaneous
  Country: CA (occurrence: CA)
  Receive Date: 20130801
  Receipt Date: 20130801
  Transmission Date: 20140515
  Serious: Yes (Hospitalization)
  Sender: FDA-Public Use
  Company Number: CA-PAR PHARMACEUTICAL, INC-2013SCPR006052

PATIENT
  Sex: 0

DRUGS (6)
  1. DOXYCYCLINE [Suspect]
     Indication: TENOSYNOVITIS
     Dosage: UNK UNK, UNKNOWN
     Route: 065
  2. DOXYCYCLINE [Suspect]
     Dosage: UNK, UNKNOWN
     Route: 065
  3. SULFAMETHOXAZOLE W/TRIMETHOPRIM [Suspect]
     Indication: TENOSYNOVITIS
     Dosage: UNK UNK, UNKNOWN
     Route: 065
  4. CEFTRIAXONE [Concomitant]
     Indication: TENOSYNOVITIS
     Dosage: 1 DF, UNKNOWN
     Route: 065
  5. VANCOMYCIN [Concomitant]
     Indication: TENOSYNOVITIS
     Dosage: 1 DF, UNKNOWN
     Route: 065
  6. VANCOMYCIN [Concomitant]
     Dosage: UNK, UNKNOWN
     Route: 065

REACTIONS (5)
  - Drug interaction [Unknown]
  - Drug reaction with eosinophilia and systemic symptoms [Recovered/Resolved]
  - Stevens-Johnson syndrome [Recovered/Resolved]
  - Human herpesvirus 6 infection [Recovered/Resolved]
  - Drug-induced liver injury [Recovered/Resolved]
